FAERS Safety Report 18691460 (Version 1)
Quarter: 2021Q1

REPORT INFORMATION
  Report Type: Spontaneous
  Country: US (occurrence: US)
  Receive Date: 20210101
  Receipt Date: 20210101
  Transmission Date: 20210419
  Serious: Yes (Other)
  Sender: FDA-Public Use
  Company Number: US-LUPIN PHARMACEUTICALS INC.-2020-06898

PATIENT
  Age: 39 Year
  Sex: Male

DRUGS (6)
  1. CLINDAMYCIN. [Suspect]
     Active Substance: CLINDAMYCIN
     Indication: HIDRADENITIS
     Dosage: 150 MILLIGRAM, QD
     Route: 048
     Dates: start: 2019, end: 2019
  2. RIFAMPIN. [Concomitant]
     Active Substance: RIFAMPIN
     Indication: HIDRADENITIS
     Dosage: 300 MILLIGRAM, BID
     Route: 065
  3. METRONIDAZOLE. [Concomitant]
     Active Substance: METRONIDAZOLE
     Indication: HIDRADENITIS
     Dosage: 500 MILLIGRAM, TID
     Route: 065
  4. DOXYCYCLINE. [Suspect]
     Active Substance: DOXYCYCLINE
     Indication: HIDRADENITIS
     Dosage: 100 MILLIGRAM, BID
     Route: 048
     Dates: start: 2019, end: 2019
  5. MOXIFLOXACIN. [Concomitant]
     Active Substance: MOXIFLOXACIN
     Indication: HIDRADENITIS
     Dosage: 400 MILLIGRAM, QD
     Route: 065
  6. CLINDAMYCIN. [Suspect]
     Active Substance: CLINDAMYCIN
     Dosage: 300 MILLIGRAM, QD
     Route: 048
     Dates: start: 2019, end: 2019

REACTIONS (2)
  - Drug ineffective [Unknown]
  - Tinnitus [Unknown]

NARRATIVE: CASE EVENT DATE: 2019
